FAERS Safety Report 23726219 (Version 1)
Quarter: 2024Q2

REPORT INFORMATION
  Report Type: Spontaneous
  Country: BG (occurrence: BG)
  Receive Date: 20240410
  Receipt Date: 20240410
  Transmission Date: 20240716
  Serious: Yes (Other)
  Sender: FDA-Public Use
  Company Number: BG-ASTELLAS-2024US010452

PATIENT
  Sex: Male

DRUGS (2)
  1. ENZALUTAMIDE [Suspect]
     Active Substance: ENZALUTAMIDE
     Indication: Prostate cancer
     Route: 065
     Dates: start: 202305
  2. DENOSUMAB [Concomitant]
     Active Substance: DENOSUMAB
     Indication: Prostate cancer
     Dosage: 120 MG, EVERY 28 DAYS
     Route: 065
     Dates: start: 202305

REACTIONS (2)
  - Malignant neoplasm progression [Unknown]
  - Therapy partial responder [Unknown]
